FAERS Safety Report 5520628-5 (Version None)
Quarter: 2007Q4

REPORT INFORMATION
  Report Type: 
  Country: None (occurrence: None)
  Receive Date: 20071119
  Receipt Date: 20071107
  Transmission Date: 20080405
  Serious: Yes (Hospitalization)
  Sender: FDA-Public Use
  Company Number: US-PFIZER INC-2007093643

PATIENT
  Sex: Female
  Weight: 104.3 kg

DRUGS (12)
  1. SU-011,248 [Suspect]
     Indication: BREAST CANCER
     Route: 048
     Dates: start: 20070927, end: 20071024
  2. SU-011,248 [Suspect]
     Route: 048
  3. PACLITAXEL [Suspect]
     Indication: BREAST CANCER
     Route: 042
  4. TAMOXIFEN CITRATE [Concomitant]
     Dates: start: 20070809, end: 20071003
  5. ZOFRAN [Concomitant]
     Route: 042
  6. DECADRON [Concomitant]
     Route: 042
     Dates: start: 20070927
  7. PEPCID [Concomitant]
     Route: 042
     Dates: start: 20070927
  8. BENADRYL [Concomitant]
     Route: 042
     Dates: start: 20070927
  9. AMBIEN [Concomitant]
     Route: 048
  10. PERCOCET [Concomitant]
     Route: 048
  11. LORAZEPAM [Concomitant]
     Route: 048
     Dates: start: 20070927
  12. COMPAZINE [Concomitant]
     Route: 048
     Dates: start: 20070927

REACTIONS (1)
  - NON-CARDIAC CHEST PAIN [None]
